FAERS Safety Report 8187918 (Version 3)
Quarter: 2013Q3

REPORT INFORMATION
  Report Type: Spontaneous
  Country: CA (occurrence: CA)
  Receive Date: 20111018
  Receipt Date: 20130912
  Transmission Date: 20140515
  Serious: Yes (Other)
  Sender: FDA-Public Use
  Company Number: CA-ROCHE-1004253

PATIENT
  Sex: Female

DRUGS (16)
  1. XOLAIR [Suspect]
     Indication: ASTHMA
     Route: 058
     Dates: start: 20110907
  2. XOLAIR [Suspect]
     Indication: CHRONIC OBSTRUCTIVE PULMONARY DISEASE
     Route: 065
     Dates: start: 20130904
  3. VENTOLIN [Concomitant]
  4. GLUCOPHAGE [Concomitant]
  5. SYNTHROID [Concomitant]
  6. WELLBUTRIN [Concomitant]
  7. MONOCOR [Concomitant]
  8. ATIVAN [Concomitant]
  9. SYMBICORT [Concomitant]
  10. SPIRIVA [Concomitant]
     Dosage: ^BOEHRINGER INGELHEIM^
     Route: 065
  11. NEURONTIN [Concomitant]
  12. FOSAMAX [Concomitant]
  13. ELAVIL [Concomitant]
  14. CRESTOR [Concomitant]
  15. ACTOS [Concomitant]
  16. DIAMICRON [Concomitant]

REACTIONS (5)
  - Blood pressure fluctuation [Unknown]
  - Heart rate irregular [Unknown]
  - Pneumonia [Unknown]
  - Dyspnoea [Unknown]
  - Respiratory rate increased [Unknown]
